FAERS Safety Report 5734791-4 (Version None)
Quarter: 2008Q2

REPORT INFORMATION
  Report Type: 
  Country: None (occurrence: None)
  Receive Date: 20080508
  Receipt Date: 20080422
  Transmission Date: 20081010
  Serious: Yes (Other)
  Sender: FDA-Public Use
  Company Number: 8031983

PATIENT
  Age: 12 Year
  Sex: Male
  Weight: 67.27 kg

DRUGS (7)
  1. XYZAL [Suspect]
     Indication: RHINITIS ALLERGIC
     Dosage: 5 MG/ D,PO
     Route: 048
     Dates: start: 20080323, end: 20080412
  2. PULMICORT [Concomitant]
  3. NASONEX [Concomitant]
  4. ALBUTEROL [Concomitant]
  5. ALLERGY SHOTS [Concomitant]
  6. BACTRIM [Concomitant]
  7. ACYCLOVIR SODIUM [Concomitant]

REACTIONS (1)
  - STEVENS-JOHNSON SYNDROME [None]
